FAERS Safety Report 7357680-0 (Version None)
Quarter: 2011Q1

REPORT INFORMATION
  Report Type: 
  Country: None (occurrence: None)
  Receive Date: 20110314
  Receipt Date: 20110314
  Transmission Date: 20110831
  Serious: Yes (Other)
  Sender: FDA-Public Use
  Company Number: None

PATIENT
  Sex: Male
  Weight: 82.5547 kg

DRUGS (1)
  1. BUSPIRONE HCL [Suspect]
     Indication: ANXIETY
     Dosage: 5 MG TID PO  TWO DOSES
     Route: 048
     Dates: start: 20110309, end: 20110309

REACTIONS (3)
  - DOCUMENTED HYPERSENSITIVITY TO ADMINISTERED DRUG [None]
  - REACTION TO DRUG EXCIPIENTS [None]
  - RHINITIS ALLERGIC [None]
